FAERS Safety Report 13599351 (Version 2)
Quarter: 2017Q2

REPORT INFORMATION
  Report Type: Spontaneous
  Country: BR (occurrence: BR)
  Receive Date: 20170531
  Receipt Date: 20170608
  Transmission Date: 20170830
  Serious: Yes (Disabling, Other)
  Sender: FDA-Public Use
  Company Number: BR-ABBVIE-17K-020-1991835-00

PATIENT
  Age: 10 Year
  Sex: Female
  Weight: 51 kg

DRUGS (2)
  1. LUPRON DEPOT [Suspect]
     Active Substance: LEUPROLIDE ACETATE
     Route: 030
     Dates: start: 201610
  2. LUPRON DEPOT [Suspect]
     Active Substance: LEUPROLIDE ACETATE
     Indication: PRECOCIOUS PUBERTY
     Route: 030
     Dates: start: 20160630, end: 20160630

REACTIONS (18)
  - Iron metabolism disorder [Recovered/Resolved]
  - Blood oestrogen increased [Recovered/Resolved]
  - Ultrasound scan abnormal [Recovered/Resolved]
  - Irritability [Recovered/Resolved]
  - Blood luteinising hormone increased [Recovered/Resolved]
  - Menorrhagia [Recovered/Resolved]
  - Muscle spasms [Recovered/Resolved]
  - Anaemia [Recovered/Resolved]
  - Menstruation normal [Recovered/Resolved]
  - Loss of personal independence in daily activities [Recovered/Resolved]
  - Breast enlargement [Recovered/Resolved]
  - Headache [Recovered/Resolved]
  - Serum ferritin decreased [Recovered/Resolved]
  - Protein deficiency [Recovered/Resolved]
  - Progesterone increased [Recovered/Resolved]
  - X-ray abnormal [Recovered/Resolved]
  - Menstruation normal [Recovered/Resolved]
  - Hair growth abnormal [Recovered/Resolved]

NARRATIVE: CASE EVENT DATE: 2016
